FAERS Safety Report 8521059-6 (Version None)
Quarter: 2012Q3

REPORT INFORMATION
  Report Type: 
  Country: None (occurrence: None)
  Receive Date: 20120706
  Receipt Date: 20120626
  Transmission Date: 20120928
  Serious: Yes (Other)
  Sender: FDA-Public Use
  Company Number: DKLU1082820

PATIENT

DRUGS (4)
  1. METHOTREXATE SODIUM [Suspect]
     Indication: GESTATIONAL TROPHOBLASTIC TUMOUR
     Dosage: 300 MG/M2 MILLIGRAM (S) /SQ.METER, DAY 8
  2. ETOPOSIDE [Suspect]
     Indication: GESTATIONAL TROPHOBLASTIC TUMOUR
     Dosage: 150;100 MG/M2 SQ.METER, DAY 1;8
  3. COSMEGEN [Suspect]
     Indication: GESTATIONAL TROPHOBLASTIC TUMOUR
     Dosage: 0.5 MG, DAY, INTRAVENOUS, DAY 8,
     Route: 042
  4. CISPLATIN [Suspect]
     Indication: GESTATIONAL TROPHOBLASTIC TUMOUR
     Dosage: 75 MG/M2 MILLIGRAM (S)/SQ.METER, DAY 1, INTRAVENOUS INFUSION
     Route: 042

REACTIONS (1)
  - OTOTOXICITY [None]
